FAERS Safety Report 17885347 (Version 1)
Quarter: 2020Q2

REPORT INFORMATION
  Report Type: Spontaneous
  Country: US (occurrence: US)
  Receive Date: 20200611
  Receipt Date: 20200611
  Transmission Date: 20200714
  Serious: Yes (Other)
  Sender: FDA-Public Use
  Company Number: US-PFIZER INC-2020-07334

PATIENT
  Age: 83 Year
  Sex: Male
  Weight: 73.02 kg

DRUGS (10)
  1. MEKTOVI [Suspect]
     Active Substance: BINIMETINIB
     Dosage: UNK
     Route: 048
     Dates: start: 20200207, end: 202002
  2. MEKTOVI [Suspect]
     Active Substance: BINIMETINIB
     Indication: METASTATIC MALIGNANT MELANOMA
     Dosage: UNK
     Route: 048
     Dates: start: 20190301, end: 201903
  3. BRAFTOVI [Suspect]
     Active Substance: ENCORAFENIB
     Dosage: UNK
     Route: 048
     Dates: start: 20200207, end: 202002
  4. BRAFTOVI [Suspect]
     Active Substance: ENCORAFENIB
     Indication: METASTATIC MALIGNANT MELANOMA
     Dosage: UNK
     Route: 048
     Dates: start: 20190301, end: 201903
  5. BRAFTOVI [Suspect]
     Active Substance: ENCORAFENIB
     Dosage: 3 DF, 1X/DAY
     Route: 048
     Dates: start: 2019, end: 20200204
  6. BRAFTOVI [Suspect]
     Active Substance: ENCORAFENIB
     Dosage: 2 DF, 1X/DAY
     Route: 048
     Dates: start: 20200217
  7. MEKTOVI [Suspect]
     Active Substance: BINIMETINIB
     Dosage: UNK
     Route: 048
     Dates: start: 2019, end: 20200204
  8. SIMVASTATIN. [Concomitant]
     Active Substance: SIMVASTATIN
     Indication: BLOOD CHOLESTEROL ABNORMAL
     Dosage: UNK
     Dates: start: 20090928
  9. MEKTOVI [Suspect]
     Active Substance: BINIMETINIB
     Dosage: 1 DF, 2X/DAY
     Route: 048
     Dates: start: 20200217
  10. FERROUS SULFATE. [Concomitant]
     Active Substance: FERROUS SULFATE
     Indication: IRON DEFICIENCY
     Dosage: UNK

REACTIONS (4)
  - Transaminases increased [Unknown]
  - Urinary tract infection [Recovering/Resolving]
  - Calculus urinary [Unknown]
  - Haematuria [Recovered/Resolved]

NARRATIVE: CASE EVENT DATE: 20200203
